FAERS Safety Report 23557381 (Version 1)
Quarter: 2024Q1

REPORT INFORMATION
  Report Type: Report from Study
  Country: US (occurrence: US)
  Receive Date: 20240223
  Receipt Date: 20240223
  Transmission Date: 20240410
  Serious: Yes (Hospitalization, Other)
  Sender: FDA-Public Use
  Company Number: US-ABBVIE-5646928

PATIENT
  Age: 34 Year
  Sex: Male

DRUGS (1)
  1. RINVOQ [Suspect]
     Active Substance: UPADACITINIB
     Indication: Crohn^s disease
     Dosage: FORM STRENGTH UNITS: 45 MILLIGRAM
     Route: 048
     Dates: start: 20231216

REACTIONS (7)
  - Embolism [Unknown]
  - Flatulence [Unknown]
  - Haemorrhage [Unknown]
  - Shock [Unknown]
  - Colectomy [Unknown]
  - Ileostomy [Unknown]
  - Small intestinal haemorrhage [Unknown]

NARRATIVE: CASE EVENT DATE: 20231201
